FAERS Safety Report 7515635-7 (Version None)
Quarter: 2011Q2

REPORT INFORMATION
  Report Type: 
  Country: None (occurrence: None)
  Receive Date: 20110601
  Receipt Date: 20100726
  Transmission Date: 20111010
  Serious: No
  Sender: FDA-Public Use
  Company Number: US-PFIZER INC-2010094252

PATIENT
  Sex: Female

DRUGS (1)
  1. CHANTIX [Suspect]
     Dosage: UNK

REACTIONS (6)
  - ABNORMAL DREAMS [None]
  - INSOMNIA [None]
  - ANXIETY [None]
  - NAUSEA [None]
  - FLATULENCE [None]
  - RESTLESSNESS [None]
